FAERS Safety Report 25309049 (Version 5)
Quarter: 2025Q4

REPORT INFORMATION
  Report Type: Spontaneous
  Country: US (occurrence: US)
  Receive Date: 20250513
  Receipt Date: 20251203
  Transmission Date: 20260118
  Serious: Yes (Other)
  Sender: SANOFI AVENTIS
  Company Number: US-SA-2025SA135340

PATIENT
  Age: 54 Year
  Sex: Female

DRUGS (2)
  1. DUPIXENT [Suspect]
     Active Substance: DUPILUMAB
     Indication: Asthma
     Dosage: 300 MG, QOW
     Route: 058
     Dates: end: 20250504
  2. DUPIXENT [Suspect]
     Active Substance: DUPILUMAB
     Dosage: 300 MG, QOW
     Route: 058
     Dates: start: 2025, end: 2025

REACTIONS (11)
  - Pneumonia pseudomonal [Recovered/Resolved]
  - Pseudomonas bronchitis [Recovered/Resolved]
  - Malaise [Recovering/Resolving]
  - Weight increased [Unknown]
  - Taste disorder [Unknown]
  - Fatigue [Unknown]
  - Muscular weakness [Unknown]
  - Cough [Unknown]
  - Sputum discoloured [Unknown]
  - Oedema [Unknown]
  - Headache [Unknown]

NARRATIVE: CASE EVENT DATE: 20250101
